FAERS Safety Report 13590773 (Version 2)
Quarter: 2017Q2

REPORT INFORMATION
  Report Type: Report from Study
  Country: None (occurrence: BR)
  Receive Date: 20170529
  Receipt Date: 20170607
  Transmission Date: 20170830
  Serious: Yes (Disabling, Other)
  Sender: FDA-Public Use
  Company Number: BR-ABBVIE-17K-020-1988220-00

PATIENT
  Sex: Female

DRUGS (2)
  1. HUMIRA [Suspect]
     Active Substance: ADALIMUMAB
     Indication: RHEUMATOID ARTHRITIS
     Route: 058
     Dates: start: 20150909
  2. HUMIRA [Suspect]
     Active Substance: ADALIMUMAB
     Route: 058

REACTIONS (6)
  - Renal disorder [Unknown]
  - Thyroid disorder [Unknown]
  - Back pain [Unknown]
  - Blood pressure abnormal [Unknown]
  - Deafness [Unknown]
  - Malaise [Unknown]
